FAERS Safety Report 4673008-9 (Version None)
Quarter: 2005Q2

REPORT INFORMATION
  Report Type: 
  Country: None (occurrence: None)
  Receive Date: 20050524
  Receipt Date: 20050510
  Transmission Date: 20051028
  Serious: Yes (Death)
  Sender: FDA-Public Use
  Company Number: 2005S1003387

PATIENT
  Age: 81 Year
  Sex: Female

DRUGS (8)
  1. CLOZAPINE [Suspect]
     Dosage: 25 MG BID PO
     Route: 048
     Dates: start: 20030501, end: 20050421
  2. THYROID TAB [Concomitant]
  3. OLANZAPINE [Concomitant]
  4. METOCLOPRAMIDE [Concomitant]
  5. HYDROCHLORIDE [Concomitant]
  6. COLECALCIFEROL/CALCIUM [Concomitant]
  7. OMEPRAZOLE [Concomitant]
  8. PREDNISONE TAB [Concomitant]

REACTIONS (1)
  - DEATH [None]
